FAERS Safety Report 21867770 (Version 1)
Quarter: 2023Q1

REPORT INFORMATION
  Report Type: Spontaneous
  Country: US (occurrence: US)
  Receive Date: 20230116
  Receipt Date: 20230116
  Transmission Date: 20230418
  Serious: Yes (Death, Hospitalization, Other)
  Sender: FDA-Public Use
  Company Number: US-ORGANON-O2301USA001142

PATIENT
  Age: 51 Year
  Sex: Female

DRUGS (19)
  1. SINGULAIR [Suspect]
     Active Substance: MONTELUKAST SODIUM
     Dosage: UNK
     Route: 048
  2. REMERON [Suspect]
     Active Substance: MIRTAZAPINE
     Dosage: UNK
     Route: 048
  3. METFORMIN [Suspect]
     Active Substance: METFORMIN HYDROCHLORIDE
     Dosage: UNK
     Route: 048
  4. LITHIUM [Suspect]
     Active Substance: LITHIUM
     Dosage: UNK
     Route: 048
  5. ISOSORBIDE [Suspect]
     Active Substance: ISOSORBIDE
     Dosage: EXTENDED RELEASE (ER)
     Route: 048
  6. QUETIAPINE [Suspect]
     Active Substance: QUETIAPINE
     Dosage: UNK
     Route: 048
  7. BLACK COHOSH [Suspect]
     Active Substance: BLACK COHOSH
     Dosage: UNK
     Route: 048
  8. CITALOPRAM [Suspect]
     Active Substance: CITALOPRAM HYDROBROMIDE
     Dosage: EXTENDED RELEASE (ER)
     Route: 048
  9. FAMOTIDINE [Suspect]
     Active Substance: FAMOTIDINE
     Dosage: UNK
     Route: 048
  10. FENOFIBRATE [Suspect]
     Active Substance: FENOFIBRATE
     Dosage: UNK
     Route: 048
  11. FUROSEMIDE [Suspect]
     Active Substance: FUROSEMIDE
     Dosage: UNK
     Route: 048
  12. LINACLOTIDE [Suspect]
     Active Substance: LINACLOTIDE
     Dosage: UNK
     Route: 048
  13. MELATONIN [Suspect]
     Active Substance: MELATONIN
     Dosage: UNK
     Route: 048
  14. NAPROXEN [Suspect]
     Active Substance: NAPROXEN
     Dosage: UNK
     Route: 048
  15. VITAMIN E [Suspect]
     Active Substance: .ALPHA.-TOCOPHEROL
     Dosage: UNK
     Route: 048
  16. PRAZOSIN [Suspect]
     Active Substance: PRAZOSIN
     Dosage: UNK
     Route: 048
  17. ROPINIROLE [Suspect]
     Active Substance: ROPINIROLE
     Dosage: UNK
     Route: 048
  18. ROSUVASTATIN [Suspect]
     Active Substance: ROSUVASTATIN
     Dosage: UNK
     Route: 048
  19. VITAMIN D NOS [Suspect]
     Active Substance: VITAMIN D NOS
     Dosage: UNK
     Route: 048

REACTIONS (1)
  - Suspected suicide [Fatal]
